FAERS Safety Report 4450573-8 (Version None)
Quarter: 2004Q3

REPORT INFORMATION
  Report Type: 
  Country: None (occurrence: None)
  Receive Date: 20040913
  Receipt Date: 20040630
  Transmission Date: 20050211
  Serious: No
  Sender: FDA-Public Use
  Company Number: 2004-BP-05213BP(0)

PATIENT
  Age: 79 Year
  Sex: Male

DRUGS (6)
  1. SPIRIVA [Suspect]
     Indication: CHRONIC OBSTRUCTIVE AIRWAYS DISEASE
     Dosage: 18 MCG (18 MCG), IH
     Route: 055
     Dates: start: 20040620
  2. ADVAIR (SERETIDE MIET) [Concomitant]
  3. PRINIVIL [Concomitant]
  4. TOPROL-XL [Concomitant]
  5. CALAN [Concomitant]
  6. FLOMAX [Concomitant]

REACTIONS (2)
  - PRODUCTIVE COUGH [None]
  - THROAT TIGHTNESS [None]
